FAERS Safety Report 4860953-4 (Version None)
Quarter: 2005Q4

REPORT INFORMATION
  Report Type: 
  Country: None (occurrence: None)
  Receive Date: 20051220
  Receipt Date: 20051209
  Transmission Date: 20060501
  Serious: Yes (Other)
  Sender: FDA-Public Use
  Company Number: CA-BRISTOL-MYERS SQUIBB COMPANY-13220074

PATIENT
  Age: 80 Year
  Sex: Female

DRUGS (9)
  1. TEQUIN [Suspect]
     Route: 042
  2. ALLOPURINOL [Concomitant]
  3. MULTIVITAMIN [Concomitant]
  4. NADOLOL [Concomitant]
     Route: 048
  5. RISPERIDONE [Concomitant]
  6. TEARS PLUS [Concomitant]
     Route: 047
  7. TRAZODONE HCL [Concomitant]
  8. TRIAMTERENE [Concomitant]
  9. TYLENOL [Concomitant]

REACTIONS (1)
  - HYPOGLYCAEMIA [None]
